FAERS Safety Report 9048517 (Version 1)
Quarter: 2013Q1

REPORT INFORMATION
  Report Type: Spontaneous
  Country: US (occurrence: None)
  Receive Date: 20130130
  Receipt Date: 20130130
  Transmission Date: 20140127
  Serious: Yes (Hospitalization)
  Sender: FDA-Public Use
  Company Number: None

PATIENT
  Age: 88 Year
  Sex: Male
  Weight: 67 kg

DRUGS (11)
  1. ASA [Suspect]
     Dosage: CHRONIC
     Route: 048
  2. SEPTRA [Suspect]
     Route: 048
  3. AGGRENOX [Suspect]
     Dosage: CHRONIC
     Route: 048
  4. PERCOCET [Concomitant]
  5. APAP [Concomitant]
  6. VITAMIN B12 [Suspect]
  7. XALATAN [Concomitant]
  8. ZOFRAN [Concomitant]
  9. PANTOPRAZOLE [Concomitant]
  10. REQUIP [Concomitant]
  11. TEMAZEPAM [Suspect]

REACTIONS (5)
  - Nausea [None]
  - Haematemesis [None]
  - Rash erythematous [None]
  - Pruritus [None]
  - Mallory-Weiss syndrome [None]
